FAERS Safety Report 5664380-1 (Version None)
Quarter: 2008Q1

REPORT INFORMATION
  Report Type: 
  Country: None (occurrence: None)
  Receive Date: 20080312
  Receipt Date: 20080225
  Transmission Date: 20080703
  Serious: Yes (Other)
  Sender: FDA-Public Use
  Company Number: DSA_31058_2007

PATIENT
  Sex: Female

DRUGS (7)
  1. CARDIZEM [Suspect]
     Indication: HYPERTENSION
     Dosage: (DF)
  2. CARDIZEM CD [Suspect]
     Indication: HYPERTENSION
     Dosage: (180 MG QD ORAL)
     Route: 048
     Dates: start: 19980101
  3. ATENOLOL [Concomitant]
  4. HYDROCHLOROTHIAZIDE [Concomitant]
  5. XANAX [Concomitant]
  6. PAXIL [Concomitant]
  7. TRAZODONE HCL [Concomitant]

REACTIONS (9)
  - ANAEMIA [None]
  - FATIGUE [None]
  - GENERAL PHYSICAL HEALTH DETERIORATION [None]
  - GINGIVAL BLEEDING [None]
  - GINGIVAL HYPERPLASIA [None]
  - GINGIVAL SWELLING [None]
  - INSOMNIA [None]
  - OCULAR ICTERUS [None]
  - RESPIRATORY DISORDER [None]
